FAERS Safety Report 7379926-5 (Version None)
Quarter: 2011Q1

REPORT INFORMATION
  Report Type: 
  Country: None (occurrence: None)
  Receive Date: 20110329
  Receipt Date: 20110314
  Transmission Date: 20110831
  Serious: Yes (Hospitalization)
  Sender: FDA-Public Use
  Company Number: PHHY2011BR21538

PATIENT
  Sex: Male

DRUGS (1)
  1. RASILEZ [Suspect]
     Dosage: 150 MG, UNK

REACTIONS (2)
  - MALAISE [None]
  - INFLUENZA [None]
